FAERS Safety Report 8152445-4 (Version None)
Quarter: 2012Q1

REPORT INFORMATION
  Report Type: 
  Country: None (occurrence: None)
  Receive Date: 20120103
  Receipt Date: 20111102
  Transmission Date: 20120608
  Serious: No
  Sender: FDA-Public Use
  Company Number: AE-2011-002044

PATIENT
  Age: 34 Year
  Sex: Female
  Weight: 98.8842 kg

DRUGS (6)
  1. RIBAVIRIN [Concomitant]
  2. PEGASYS [Concomitant]
  3. INCIVEK [Suspect]
     Dosage: 2250 MG (750 MG,3 IN 1 D)
  4. PROMETHAZINE [Concomitant]
  5. HYDROCODONE BITARTRATE [Concomitant]
  6. IBUPROFEN [Concomitant]

REACTIONS (1)
  - DRUG INEFFECTIVE [None]
